FAERS Safety Report 10911979 (Version 1)
Quarter: 2015Q1

REPORT INFORMATION
  Report Type: Spontaneous
  Country: US (occurrence: None)
  Receive Date: 20150310
  Receipt Date: 20150310
  Transmission Date: 20150721
  Serious: Yes (Death, Hospitalization)
  Sender: FDA-Public Use
  Company Number: None

PATIENT
  Age: 62 Year
  Sex: Male

DRUGS (22)
  1. ABRAXANE [Suspect]
     Active Substance: PACLITAXEL
     Indication: PANCREATIC CARCINOMA
     Dates: start: 20150220
  2. OXYCODONE [Concomitant]
     Active Substance: OXYCODONE
  3. ACETAMINOPHEN. [Concomitant]
     Active Substance: ACETAMINOPHEN
  4. METOCLOPRAMIDE. [Concomitant]
     Active Substance: METOCLOPRAMIDE
  5. METRONIDAZOLE. [Concomitant]
     Active Substance: METRONIDAZOLE
  6. MORPHINE [Concomitant]
     Active Substance: MORPHINE
  7. LEUCOVORIN [Suspect]
     Active Substance: LEUCOVORIN
     Indication: PANCREATIC CARCINOMA
     Dates: start: 20150220
  8. 5-FU [Suspect]
     Active Substance: FLUOROURACIL
     Indication: PANCREATIC CARCINOMA
     Dates: start: 20150220, end: 20150222
  9. MEGACE [Concomitant]
     Active Substance: MEGESTROL ACETATE
  10. OMEPRAZOLE. [Concomitant]
     Active Substance: OMEPRAZOLE
  11. ZOSYN [Concomitant]
     Active Substance: PIPERACILLIN SODIUM\TAZOBACTAM SODIUM
  12. SENNA [Concomitant]
     Active Substance: SENNA LEAF\SENNOSIDES\SENNOSIDES A AND B
  13. NS [Concomitant]
     Active Substance: SODIUM CHLORIDE
  14. LOVENOX [Concomitant]
     Active Substance: ENOXAPARIN SODIUM
  15. LISINOPRIL. [Concomitant]
     Active Substance: LISINOPRIL
  16. URSODIAL [Concomitant]
  17. HEPARIN [Concomitant]
     Active Substance: HEPARIN SODIUM
  18. HYDROPHOR [Concomitant]
     Active Substance: PETROLATUM
  19. ZINC OXIDE/MENTHOL [Concomitant]
  20. OXALIPLATIN. [Suspect]
     Active Substance: OXALIPLATIN
     Indication: PANCREATIC CARCINOMA
     Dates: start: 20150220
  21. OXYCOTIN [Concomitant]
  22. CENTRUM SILVER [Concomitant]
     Active Substance: VITAMINS

REACTIONS (4)
  - Duodenal perforation [None]
  - Metastases to liver [None]
  - Metastases to peritoneum [None]
  - Malaise [None]

NARRATIVE: CASE EVENT DATE: 20150227
